FAERS Safety Report 26037783 (Version 1)
Quarter: 2025Q4

REPORT INFORMATION
  Report Type: Spontaneous
  Country: US (occurrence: US)
  Receive Date: 20251112
  Receipt Date: 20251112
  Transmission Date: 20260117
  Serious: Yes (Life-Threatening, Hospitalization, Other)
  Sender: BRACCO
  Company Number: US-BRACCO-2024US07731

PATIENT
  Age: 45 Year
  Sex: Male

DRUGS (10)
  1. LUMASON [Suspect]
     Active Substance: SULFUR HEXAFLUORIDE
     Indication: Echocardiogram
     Dosage: 1ML BOLUS THEN 4 ML SLOW MANUAL INFUSION.
     Route: 042
     Dates: start: 20241204, end: 20241204
  2. LUMASON [Suspect]
     Active Substance: SULFUR HEXAFLUORIDE
     Indication: Echocardiogram
     Dosage: 1ML BOLUS THEN 4 ML SLOW MANUAL INFUSION.
     Route: 042
     Dates: start: 20241204, end: 20241204
  3. LUMASON [Suspect]
     Active Substance: SULFUR HEXAFLUORIDE
     Indication: Echocardiogram
     Dosage: 1ML BOLUS THEN 4 ML SLOW MANUAL INFUSION.
     Route: 042
     Dates: start: 20241204, end: 20241204
  4. ASPIRIN [Concomitant]
     Active Substance: ASPIRIN
  5. CARVEDILOL [Concomitant]
     Active Substance: CARVEDILOL
  6. CLOPIDOGREL BISULFATE [Concomitant]
     Active Substance: CLOPIDOGREL BISULFATE
  7. FUROSEMIDE [Concomitant]
     Active Substance: FUROSEMIDE
  8. HYDROCHLOROTHIAZIDE [Concomitant]
     Active Substance: HYDROCHLOROTHIAZIDE
  9. JARDIANCE [Concomitant]
     Active Substance: EMPAGLIFLOZIN
  10. LIPITOR [Concomitant]
     Active Substance: ATORVASTATIN CALCIUM
     Dosage: 40 MG, QD

REACTIONS (3)
  - Anaphylactic reaction [Recovered/Resolved]
  - Shock [Recovered/Resolved]
  - Cardiac arrest [Recovered/Resolved]

NARRATIVE: CASE EVENT DATE: 20241204
